FAERS Safety Report 10456832 (Version 1)
Quarter: 2014Q3

REPORT INFORMATION
  Report Type: Spontaneous
  Country: US (occurrence: US)
  Receive Date: 20140916
  Receipt Date: 20140916
  Transmission Date: 20150326
  Serious: No
  Sender: FDA-Public Use
  Company Number: US-ASTRAZENECA-2014SE67008

PATIENT
  Age: 46 Year
  Sex: Female

DRUGS (4)
  1. PLAVIX [Concomitant]
     Active Substance: CLOPIDOGREL BISULFATE
  2. BRILINTA [Suspect]
     Active Substance: TICAGRELOR
     Indication: LESION EXCISION
     Route: 048
     Dates: start: 201406, end: 20140903
  3. BABY ASPIRIN [Concomitant]
     Active Substance: ASPIRIN
     Indication: SUPPORTIVE CARE
     Route: 048
     Dates: start: 201406
  4. EFFIENT [Concomitant]
     Active Substance: PRASUGREL HYDROCHLORIDE
     Indication: ANTIPLATELET THERAPY
     Route: 048
     Dates: start: 20140903

REACTIONS (2)
  - Blood triglycerides increased [Unknown]
  - Liver function test abnormal [Unknown]

NARRATIVE: CASE EVENT DATE: 20140903
